FAERS Safety Report 23350865 (Version 1)
Quarter: 2023Q4

REPORT INFORMATION
  Report Type: Spontaneous
  Country: AU (occurrence: AU)
  Receive Date: 20231229
  Receipt Date: 20231229
  Transmission Date: 20240110
  Serious: Yes (Death, Life-Threatening, Other)
  Sender: FDA-Public Use
  Company Number: None

PATIENT

DRUGS (17)
  1. LENALIDOMIDE [Suspect]
     Active Substance: LENALIDOMIDE
     Indication: Plasma cell myeloma
     Dosage: 15 MILLIGRAM, UNK
     Route: 048
     Dates: start: 20220411, end: 20220911
  2. TECLISTAMAB [Suspect]
     Active Substance: TECLISTAMAB
     Indication: Plasma cell myeloma
     Dosage: 1.21 MILLILITER, UNK
     Route: 058
     Dates: start: 20220314, end: 20220905
  3. BACTRIM DS [Concomitant]
     Active Substance: SULFAMETHOXAZOLE\TRIMETHOPRIM
     Indication: Antibiotic prophylaxis
     Dosage: UNK
     Route: 048
     Dates: start: 20220808
  4. LORATADINE [Concomitant]
     Active Substance: LORATADINE
     Indication: Immune disorder prophylaxis
     Dosage: 1 DOSE UNSPECIFIED; DOSE INTERVAL: 1 WEEK
     Route: 048
     Dates: start: 20220410
  5. HIZENTRA [Concomitant]
     Active Substance: HUMAN IMMUNOGLOBULIN G
     Indication: Immune disorder prophylaxis
     Dosage: 35 MILLILITER,  1 WEEK
     Route: 058
     Dates: start: 20210901
  6. ASPIRIN [Concomitant]
     Active Substance: ASPIRIN
     Indication: Thrombosis prophylaxis
     Dosage: 100 MILLIGRAM, UNK
     Route: 048
     Dates: start: 20170101
  7. ASPIRIN [Concomitant]
     Active Substance: ASPIRIN
     Dosage: 100 MILLIGRAM, UNK
     Route: 048
  8. BUDESONIDE [Concomitant]
     Active Substance: BUDESONIDE
     Indication: Rhinovirus infection
     Dosage: 2 DOSE UNSPECIFIED; DOSE FORM: INHALANT; INTERVAL: 1 DAY
     Dates: start: 20220616
  9. CETIRIZINE HYDROCHLORIDE [Concomitant]
     Active Substance: CETIRIZINE HYDROCHLORIDE
     Indication: Premedication
     Dosage: 10 MILLIGRAM
     Route: 048
     Dates: start: 20220725
  10. DEXAMETHASONE [Concomitant]
     Active Substance: DEXAMETHASONE
     Indication: Pain
     Dosage: 8 MILLIGRAM
     Route: 048
     Dates: start: 20220926
  11. GRANULOCYTE COLONY-STIMULATING FACTOR NOS [Concomitant]
     Active Substance: GRANULOCYTE COLONY-STIMULATING FACTOR NOS
     Indication: Prophylaxis
     Dosage: 300 MICROGRAM
     Route: 058
     Dates: start: 20210101
  12. HYDROCORTISONE [Concomitant]
     Active Substance: HYDROCORTISONE
     Indication: Injection site reaction
     Dosage: UNK
     Route: 061
     Dates: start: 20220405
  13. ICHTHAMMOL [Concomitant]
     Active Substance: ICHTHAMMOL
     Indication: Dermal cyst
     Dosage: 1 DOSE PER DAY
     Route: 061
     Dates: start: 20220803
  14. NITROFURANTOIN [Concomitant]
     Active Substance: NITROFURANTOIN
     Indication: Urinary tract infection
     Dosage: 100 MILLIGRAM ONCE A DAY
     Route: 048
  15. NIZATIDINE [Concomitant]
     Active Substance: NIZATIDINE
     Indication: Injection site reaction
     Dosage: 150 MILLIGRAM PER 2 WEEKS
     Route: 048
     Dates: start: 20220822
  16. ONDANSETRON [Concomitant]
     Active Substance: ONDANSETRON
     Indication: Nausea
     Dosage: 18 MILLIGRAM
     Route: 048
     Dates: start: 20220909
  17. TEMAZEPAM [Concomitant]
     Active Substance: TEMAZEPAM
     Indication: Insomnia
     Dosage: 10 MILLIGRAM
     Route: 048
     Dates: start: 20220509

REACTIONS (1)
  - Metastatic malignant melanoma [Fatal]

NARRATIVE: CASE EVENT DATE: 20221126
